FAERS Safety Report 20373883 (Version 1)
Quarter: 2022Q1

REPORT INFORMATION
  Report Type: Report from Study
  Country: ES (occurrence: ES)
  Receive Date: 20220125
  Receipt Date: 20220125
  Transmission Date: 20220423
  Serious: Yes (Life-Threatening, Other)
  Sender: FDA-Public Use
  Company Number: None

PATIENT
  Age: 32 Year
  Sex: Female

DRUGS (5)
  1. AMITRIPTYLINE [Interacting]
     Active Substance: AMITRIPTYLINE
     Dosage: 25 TABLETS OF 25 MG
     Route: 048
     Dates: start: 20200929, end: 20200929
  2. TRAZODONE HYDROCHLORIDE [Interacting]
     Active Substance: TRAZODONE HYDROCHLORIDE
     Dosage: 30 TABLETS OF 100 MG
     Route: 048
     Dates: start: 20200929, end: 20200929
  3. PREGABALIN [Interacting]
     Active Substance: PREGABALIN
     Route: 048
     Dates: start: 20200929, end: 20200929
  4. FENTANYL [Interacting]
     Active Substance: FENTANYL
     Indication: Suicide attempt
     Dosage: 2 PATCHES OF FENTANYL
     Route: 062
     Dates: start: 20200929, end: 20200929
  5. LORAZEPAM [Interacting]
     Active Substance: LORAZEPAM
     Indication: Suicide attempt
     Route: 048
     Dates: start: 20200929, end: 20200929

REACTIONS (4)
  - Acute respiratory failure [Recovered/Resolved]
  - Depressed level of consciousness [Recovered/Resolved]
  - Drug interaction [Unknown]
  - Suicide attempt [Unknown]

NARRATIVE: CASE EVENT DATE: 20200929
